FAERS Safety Report 25467345 (Version 1)
Quarter: 2025Q2

REPORT INFORMATION
  Report Type: Spontaneous
  Country: US (occurrence: None)
  Receive Date: 20250621
  Receipt Date: 20250621
  Transmission Date: 20250717
  Serious: Yes (Disabling, Other)
  Sender: FDA-CTU
  Company Number: None

PATIENT
  Age: 31 Year
  Sex: Female
  Weight: 45 kg

DRUGS (1)
  1. LISDEXAMFETAMINE [Suspect]
     Active Substance: LISDEXAMFETAMINE
     Indication: Attention deficit hyperactivity disorder

REACTIONS (6)
  - Product availability issue [None]
  - Withdrawal syndrome [None]
  - Fatigue [None]
  - Brain fog [None]
  - Binge eating [None]
  - Affect lability [None]

NARRATIVE: CASE EVENT DATE: 20250615
